FAERS Safety Report 7625641-X (Version None)
Quarter: 2011Q3

REPORT INFORMATION
  Report Type: 
  Country: None (occurrence: None)
  Receive Date: 20110721
  Receipt Date: 20110712
  Transmission Date: 20111222
  Serious: Yes (Hospitalization, Other)
  Sender: FDA-Public Use
  Company Number: GB-RB-026952-11

PATIENT
  Sex: Female

DRUGS (1)
  1. SCHOLL CORN REMOVER [Suspect]

REACTIONS (1)
  - ULCER [None]
